FAERS Safety Report 5474682-X (Version None)
Quarter: 2007Q4

REPORT INFORMATION
  Report Type: 
  Country: None (occurrence: None)
  Receive Date: 20071002
  Receipt Date: 20070626
  Transmission Date: 20080405
  Serious: Yes (Hospitalization, Other)
  Sender: FDA-Public Use
  Company Number: PHEH2007US09418

PATIENT
  Sex: Female

DRUGS (4)
  1. NORVASC [Suspect]
     Dosage: 10 MG, QD
  2. CLONIDINE [Suspect]
  3. BENICAR HCT [Suspect]
     Dosage: UNK, BID
  4. HYDROCHLOROTHIAZIDE [Suspect]
     Indication: HYPERTENSION
     Dosage: 25 MG, QD

REACTIONS (4)
  - ANGIOEDEMA [None]
  - HYPERSENSITIVITY [None]
  - HYPOTHYROIDISM [None]
  - TRANSIENT ISCHAEMIC ATTACK [None]
